FAERS Safety Report 7967246-7 (Version None)
Quarter: 2011Q4

REPORT INFORMATION
  Report Type: 
  Country: None (occurrence: None)
  Receive Date: 20111209
  Receipt Date: 20111130
  Transmission Date: 20120403
  Serious: Yes (Other)
  Sender: FDA-Public Use
  Company Number: US-BRISTOL-MYERS SQUIBB COMPANY-16260846

PATIENT

DRUGS (2)
  1. SUSTIVA [Suspect]
  2. MARIJUANA [Suspect]

REACTIONS (1)
  - DRUG ABUSE [None]
